FAERS Safety Report 10200838 (Version 1)
Quarter: 2014Q2

REPORT INFORMATION
  Report Type: Spontaneous
  Country: US (occurrence: US)
  Receive Date: 20140528
  Receipt Date: 20140528
  Transmission Date: 20141212
  Serious: Yes (Hospitalization, Other)
  Sender: FDA-Public Use
  Company Number: US-ELI_LILLY_AND_COMPANY-US201405007807

PATIENT
  Age: 54 Year
  Sex: Female

DRUGS (1)
  1. PEMETREXED [Suspect]
     Indication: TRANSITIONAL CELL CARCINOMA
     Dosage: 500 MG/M2, OTHER
     Route: 065

REACTIONS (3)
  - Nephrogenic diabetes insipidus [Unknown]
  - Renal failure acute [Not Recovered/Not Resolved]
  - Renal failure chronic [Not Recovered/Not Resolved]
